FAERS Safety Report 18310183 (Version 2)
Quarter: 2020Q4

REPORT INFORMATION
  Report Type: Report from Study
  Country: CN (occurrence: CN)
  Receive Date: 20200924
  Receipt Date: 20201002
  Transmission Date: 20210113
  Serious: Yes (Hospitalization)
  Sender: FDA-Public Use
  Company Number: CN-VERASTEM-2020-00216

PATIENT

DRUGS (2)
  1. IPI-145 [Suspect]
     Active Substance: DUVELISIB
     Dosage: 25 MILLIGRAM, BID
     Route: 048
     Dates: start: 20200922
  2. IPI-145 [Suspect]
     Active Substance: DUVELISIB
     Indication: LYMPHOMA
     Dosage: 25 MILLIGRAM, BID
     Route: 048
     Dates: start: 20200630, end: 20200907

REACTIONS (1)
  - Enteritis infectious [Recovered/Resolved]

NARRATIVE: CASE EVENT DATE: 20200910
